APPROVED DRUG PRODUCT: SECONAL SODIUM
Active Ingredient: SECOBARBITAL SODIUM
Strength: 100MG
Dosage Form/Route: CAPSULE;ORAL
Application: A086101 | Product #002
Applicant: VALEANT PHARMACEUTICALS NORTH AMERICA LLC
Approved: Oct 3, 1983 | RLD: No | RS: No | Type: DISCN